FAERS Safety Report 6249067-9 (Version None)
Quarter: 2009Q2

REPORT INFORMATION
  Report Type: 
  Country: None (occurrence: None)
  Receive Date: 20090629
  Receipt Date: 20090618
  Transmission Date: 20091009
  Serious: Yes (Hospitalization, Disabling, Other)
  Sender: FDA-Public Use
  Company Number: US-AVENTIS-200915462US

PATIENT
  Sex: Female

DRUGS (2)
  1. LANTUS [Suspect]
     Indication: DIABETES MELLITUS
     Dosage: DOSE: UNK
     Route: 058
     Dates: start: 20040101
  2. OPTICLIK (INSULIN INJECTION PEN) [Suspect]
     Indication: DIABETES MELLITUS
     Dates: start: 20040101

REACTIONS (2)
  - ANKLE FRACTURE [None]
  - NEUROPATHIC ARTHROPATHY [None]
